FAERS Safety Report 23629378 (Version 2)
Quarter: 2024Q1

REPORT INFORMATION
  Report Type: Report from Study
  Country: HU (occurrence: HU)
  Receive Date: 20240313
  Receipt Date: 20240327
  Transmission Date: 20240410
  Serious: Yes (Hospitalization)
  Sender: FDA-Public Use
  Company Number: HU-ABBVIE-5674296

PATIENT
  Age: 74 Year
  Sex: Female

DRUGS (15)
  1. CARBIDOPA\LEVODOPA [Suspect]
     Active Substance: CARBIDOPA\LEVODOPA
     Indication: Parkinson^s disease
     Dosage: MORNING DOSE: 7.7 ML; CONTINUOUS DOSE: 3.2 ML/HOUR; EXTRA DOSE: 2.6 ML
     Route: 050
     Dates: start: 20200108
  2. CARBIDOPA\LEVODOPA [Suspect]
     Active Substance: CARBIDOPA\LEVODOPA
  3. TIZANIDINE [Concomitant]
     Active Substance: TIZANIDINE
     Indication: Musculoskeletal disorder
     Dosage: FORM STRENGTH-4 MILLIGRAM
     Route: 048
     Dates: start: 2013
  4. HYDROCHLOROTHIAZIDE\TELMISARTAN [Concomitant]
     Active Substance: HYDROCHLOROTHIAZIDE\TELMISARTAN
     Indication: Hypertension
     Dosage: FORM STRENGTH- 80 MG TELMISARTAN AND 12.5 MG HYDROCHLOROTHIAZIDE/ TABLET
     Route: 048
     Dates: start: 2019
  5. Ferrous sulfate folic acid [Concomitant]
     Indication: Iron deficiency anaemia
     Dosage: 114 MG FERROUS SULFATE, 0.8 MG FOLIC ACID/TABLET
     Route: 048
     Dates: start: 2021
  6. ALPRAZOLAMS [Concomitant]
     Indication: Anxiolytic therapy
     Dosage: TIME INTERVAL: 0.33333333 DAYS: 1.5 MILLIGRAM?FORM STRENGTH: 0.5 MILLIGRAM
     Route: 048
     Dates: start: 2011
  7. NICERGOLINE [Concomitant]
     Active Substance: NICERGOLINE
     Indication: Product used for unknown indication
     Dosage: 30 MILLIGRAM
     Route: 048
     Dates: start: 2023
  8. AMLODIPINE [Concomitant]
     Active Substance: AMLODIPINE BESYLATE
     Indication: Hypertension
     Dosage: FORM STRENGTH: 5 MILLIGRAM
     Route: 048
     Dates: start: 2016
  9. DULOXETINE [Concomitant]
     Active Substance: DULOXETINE
     Indication: Depression
     Dosage: FORM STRENGTH-30 MILLIGRAM
     Route: 048
     Dates: start: 2018
  10. BACLOFEN [Concomitant]
     Active Substance: BACLOFEN
     Indication: Hypertonia
     Dosage: 100 MILLIGRAM?FORM STRENGTH: 25 MG
     Route: 048
     Dates: start: 202001
  11. ENOXAPARIN [Concomitant]
     Active Substance: ENOXAPARIN
     Indication: Prophylaxis
     Dosage: FORM STRENGTH: 4000  IU (INTERNATIONAL UNIT)
     Route: 058
     Dates: start: 202010
  12. CYANOCOBALAMIN [Concomitant]
     Active Substance: CYANOCOBALAMIN
     Indication: Prophylaxis
     Dosage: 300 MICROGRAM/ML MONTHLY
     Route: 030
     Dates: start: 202001
  13. MOXONIDINE EG [Concomitant]
     Indication: Hypertension
     Dosage: FORM STRENGTH- 0.3 MILLIGRAM
     Route: 048
     Dates: start: 2023
  14. TELMISARTAN [Concomitant]
     Active Substance: TELMISARTAN
     Indication: Hypertension
     Dosage: FORM STRENGTH- 80 MILLIGRAM?HALF TABLET DAILY
     Route: 048
     Dates: start: 2023
  15. NICERGOLINE [Concomitant]
     Active Substance: NICERGOLINE
     Indication: Product used for unknown indication
     Dosage: FORM STRENGTH: 30 MG
     Route: 048
     Dates: start: 2023

REACTIONS (6)
  - Device breakage [Not Recovered/Not Resolved]
  - Femoral neck fracture [Not Recovered/Not Resolved]
  - Fall [Recovered/Resolved]
  - Inflammation [Not Recovered/Not Resolved]
  - Pyrexia [Not Recovered/Not Resolved]
  - Device dislocation [Not Recovered/Not Resolved]

NARRATIVE: CASE EVENT DATE: 20240305
